FAERS Safety Report 7491796-3 (Version None)
Quarter: 2011Q2

REPORT INFORMATION
  Report Type: 
  Country: None (occurrence: None)
  Receive Date: 20110519
  Receipt Date: 20081001
  Transmission Date: 20111010
  Serious: Yes (Other)
  Sender: FDA-Public Use
  Company Number: US-BAYER-201039611NA

PATIENT
  Age: 54 Year
  Sex: Male
  Weight: 77 kg

DRUGS (16)
  1. DIOVAN HCT [Concomitant]
     Dosage: 160/12.5 MG, QD
     Route: 048
  2. ZINACEF [Concomitant]
     Dosage: UNK
     Route: 042
     Dates: start: 20000901
  3. PROTAMINE SULFATE [Concomitant]
     Dosage: UNK
     Route: 042
     Dates: start: 20000901
  4. TRASYLOL [Suspect]
     Indication: SURGERY
     Dosage: 1 ML, PUMP PRIME
     Route: 042
     Dates: start: 20000901, end: 20000901
  5. PROCARDIA XL [Concomitant]
     Dosage: 90 MG, QD
     Route: 048
  6. PRILOSEC [Concomitant]
     Dosage: 20 MG, QD
     Route: 048
  7. PAVULON [Concomitant]
     Dosage: UNK
     Route: 042
     Dates: start: 20000901
  8. LASIX [Concomitant]
     Dosage: UNK
     Route: 042
     Dates: start: 20000901
  9. TRASYLOL [Suspect]
     Dosage: 100 ML, ONCE, LOADING DOSE
     Route: 042
     Dates: start: 20000901, end: 20000901
  10. ACETYLSALICYLIC ACID SRT [Concomitant]
     Dosage: 325 MG, BID
     Route: 048
  11. LEVOPHED [Concomitant]
     Dosage: UNK
     Route: 042
     Dates: start: 20000901
  12. FORANE [Concomitant]
     Dosage: UNK
     Dates: start: 20000901
  13. PLETAL [Concomitant]
  14. VERSED [Concomitant]
     Dosage: UNK
     Route: 042
     Dates: start: 20000901
  15. HEPARIN [Concomitant]
     Dosage: UNK
     Route: 042
     Dates: start: 20000901
  16. ETOMIDATE [Concomitant]
     Dosage: UNK
     Route: 042
     Dates: start: 20000901

REACTIONS (4)
  - PAIN [None]
  - INJURY [None]
  - CEREBROVASCULAR ACCIDENT [None]
  - EMOTIONAL DISTRESS [None]
